FAERS Safety Report 6106809-0 (Version None)
Quarter: 2009Q1

REPORT INFORMATION
  Report Type: 
  Country: None (occurrence: None)
  Receive Date: 20090304
  Receipt Date: 20090217
  Transmission Date: 20090719
  Serious: Yes (Other)
  Sender: FDA-Public Use
  Company Number: 2009MB000016

PATIENT
  Age: 5 Year
  Sex: Male

DRUGS (1)
  1. AMOXICILLIN [Suspect]
     Indication: DRUG USE FOR UNKNOWN INDICATION
     Dosage: X1;  DIS. NOS

REACTIONS (9)
  - BURNING SENSATION [None]
  - CHAPPED LIPS [None]
  - DRUG ERUPTION [None]
  - ERYTHEMA [None]
  - OEDEMA [None]
  - PAIN [None]
  - PHARYNGEAL DISORDER [None]
  - PYREXIA [None]
  - SKIN EXFOLIATION [None]
